FAERS Safety Report 15425339 (Version 2)
Quarter: 2018Q3

REPORT INFORMATION
  Report Type: Spontaneous
  Country: JP (occurrence: JP)
  Receive Date: 20180925
  Receipt Date: 20180928
  Transmission Date: 20181010
  Serious: Yes (Other)
  Sender: FDA-Public Use
  Company Number: JP-PFIZER INC-2018370571

PATIENT
  Age: 62 Year
  Sex: Male

DRUGS (6)
  1. OXALIPLATIN. [Suspect]
     Active Substance: OXALIPLATIN
     Indication: METASTASES TO LIVER
     Dosage: UNK, CYCLIC (200 MG/BODY DAY 1) (FOUR COURSES)
  2. OXALIPLATIN. [Suspect]
     Active Substance: OXALIPLATIN
     Indication: ADENOCARCINOMA OF COLON
  3. BEVACIZUMAB. [Concomitant]
     Active Substance: BEVACIZUMAB
     Indication: METASTASES TO LIVER
  4. BEVACIZUMAB. [Concomitant]
     Active Substance: BEVACIZUMAB
     Indication: ADENOCARCINOMA OF COLON
     Dosage: UNK, CYCLIC (450 MG/BODY DAY 1) (FOUR COURSES)
  5. GIMERACIL/OTERACIL/TEGAFUR [Concomitant]
     Indication: ADENOCARCINOMA OF COLON
  6. GIMERACIL/OTERACIL/TEGAFUR [Concomitant]
     Indication: METASTASES TO LIVER
     Dosage: UNK, CYCLIC

REACTIONS (2)
  - Liver injury [Recovering/Resolving]
  - Venoocclusive liver disease [Recovering/Resolving]
